FAERS Safety Report 18574440 (Version 19)
Quarter: 2025Q1

REPORT INFORMATION
  Report Type: Report from Study
  Country: US (occurrence: US)
  Receive Date: 20201203
  Receipt Date: 20250311
  Transmission Date: 20250409
  Serious: Yes (Hospitalization, Other)
  Sender: TAKEDA
  Company Number: US-TAKEDA-2020TUS051735

PATIENT
  Sex: Male
  Weight: 14 kg

DRUGS (25)
  1. HUMAN IMMUNOGLOBULIN G [Suspect]
     Active Substance: HUMAN IMMUNOGLOBULIN G
     Indication: Immunodeficiency common variable
     Dosage: 1 GRAM, 1/WEEK
     Dates: start: 20200610
  2. HUMAN IMMUNOGLOBULIN G [Suspect]
     Active Substance: HUMAN IMMUNOGLOBULIN G
     Indication: Infection
     Dosage: 1 GRAM, 1/WEEK
  3. HUMAN IMMUNOGLOBULIN G [Suspect]
     Active Substance: HUMAN IMMUNOGLOBULIN G
     Dosage: 1 GRAM, Q2WEEKS
  4. DIPHENHYDRAMINE [Concomitant]
     Active Substance: DIPHENHYDRAMINE
  5. SODIUM CHLORIDE [Concomitant]
     Active Substance: SODIUM CHLORIDE
  6. FUROSEMIDE [Concomitant]
     Active Substance: FUROSEMIDE
  7. EPINEPHRINE [Concomitant]
     Active Substance: EPINEPHRINE
  8. POTASSIUM CHLORIDE [Concomitant]
     Active Substance: POTASSIUM CHLORIDE
  9. MELATONIN [Concomitant]
     Active Substance: MELATONIN
  10. ACETAMINOPHEN [Concomitant]
     Active Substance: ACETAMINOPHEN
  11. CETIRIZINE HYDROCHLORIDE [Concomitant]
     Active Substance: CETIRIZINE HYDROCHLORIDE
  12. FLOVENT HFA [Concomitant]
     Active Substance: FLUTICASONE PROPIONATE
  13. OXYGEN [Concomitant]
     Active Substance: OXYGEN
  14. TOBRAMYCIN [Concomitant]
     Active Substance: TOBRAMYCIN
  15. HYDROPHOR [Concomitant]
     Active Substance: PETROLATUM
  16. MIRALAX [Concomitant]
     Active Substance: POLYETHYLENE GLYCOL 3350
  17. SIMETHICONE (DIMETHICONE) [Concomitant]
     Active Substance: DIMETHICONE
  18. FAMOTIDINE [Concomitant]
     Active Substance: FAMOTIDINE
  19. POTASSIUM [Concomitant]
     Active Substance: POTASSIUM
  20. CHLOROTHIAZIDE [Concomitant]
     Active Substance: CHLOROTHIAZIDE
  21. IPRATROPIUM BROMIDE AND ALBUTEROL SULFATE [Concomitant]
     Active Substance: ALBUTEROL SULFATE\IPRATROPIUM BROMIDE
  22. CETIRIZINE [Concomitant]
     Active Substance: CETIRIZINE HYDROCHLORIDE
  23. ALBUTEROL\IPRATROPIUM [Concomitant]
     Active Substance: ALBUTEROL\IPRATROPIUM
  24. Nasal [Concomitant]
  25. GAS RELIEF [Concomitant]
     Active Substance: DIMETHICONE

REACTIONS (15)
  - Respiratory syncytial virus infection [Unknown]
  - Ileus [Unknown]
  - Weight decreased [Unknown]
  - Cryptorchism [Unknown]
  - Secretion discharge [Unknown]
  - Gastroenteritis viral [Unknown]
  - Illness [Unknown]
  - Tracheitis [Unknown]
  - Infection [Unknown]
  - Hepatic mass [Unknown]
  - Product dose omission issue [Unknown]
  - Product use issue [Unknown]
  - Influenza [Unknown]
  - Infusion site mass [Unknown]
  - Pyrexia [Unknown]
